FAERS Safety Report 8469068 (Version 2)
Quarter: 2014Q1

REPORT INFORMATION
  Report Type: Spontaneous
  Country: US (occurrence: US)
  Receive Date: 20120321
  Receipt Date: 20140203
  Transmission Date: 20141002
  Serious: No
  Sender: FDA-Public Use
  Company Number: US-PFIZER INC-2012068679

PATIENT
  Age: 35 Year
  Sex: Male

DRUGS (9)
  1. PRISTIQ [Suspect]
     Dosage: UNK
  2. XANAX [Suspect]
     Dosage: UNK
  3. TRAZODONE HYDROCHLORIDE [Suspect]
     Dosage: UNK
  4. CELEXA [Suspect]
     Dosage: UNK
  5. DEMEROL [Suspect]
     Dosage: UNK
  6. VICODIN [Suspect]
     Dosage: UNK
  7. SAVELLA [Suspect]
     Dosage: UNK
  8. OXYCONTIN [Suspect]
     Dosage: UNK
  9. DEPAKOTE [Suspect]
     Dosage: UNK

REACTIONS (1)
  - Drug hypersensitivity [Unknown]
